FAERS Safety Report 8719087 (Version 3)
Quarter: 2013Q3

REPORT INFORMATION
  Report Type: Report from Study
  Country: JP (occurrence: KR)
  Receive Date: 20120813
  Receipt Date: 20130912
  Transmission Date: 20140515
  Serious: Yes (Other)
  Sender: FDA-Public Use
  Company Number: JP-009507513-1208JPN002928

PATIENT
  Age: 64 Year
  Sex: Male

DRUGS (1)
  1. TAFLUPROST [Suspect]
     Indication: NORMAL TENSION GLAUCOMA
     Dosage: 2 GTT (STRENGTH: 15 MICROGRAM/ML AND FREQUENCY: DAY)
     Route: 047
     Dates: start: 20110414

REACTIONS (1)
  - Vitreous haemorrhage [Recovered/Resolved]
